FAERS Safety Report 5775301-5 (Version None)
Quarter: 2008Q2

REPORT INFORMATION
  Report Type: 
  Country: None (occurrence: None)
  Receive Date: 20080616
  Receipt Date: 20080616
  Transmission Date: 20081010
  Serious: Yes (Hospitalization, Disabling, Other)
  Sender: FDA-Public Use
  Company Number: None

PATIENT
  Age: 52 Year
  Sex: Female
  Weight: 78 kg

DRUGS (1)
  1. FERRLECIT [Suspect]
     Indication: IRON DEFICIENCY ANAEMIA
     Dosage: 250MG WEEKLY IV DRIP  1 DOSE
     Route: 041
     Dates: start: 20080610, end: 20080610

REACTIONS (2)
  - HYPOTENSION [None]
  - URTICARIA [None]
